FAERS Safety Report 13663925 (Version 1)
Quarter: 2017Q2

REPORT INFORMATION
  Report Type: Spontaneous
  Country: US (occurrence: US)
  Receive Date: 20170617
  Receipt Date: 20170617
  Transmission Date: 20170830
  Serious: Yes (Disabling)
  Sender: FDA-Public Use
  Company Number: None

PATIENT
  Age: 20 Year
  Sex: Female
  Weight: 50 kg

DRUGS (5)
  1. CLONAZEPAM. [Concomitant]
     Active Substance: CLONAZEPAM
  2. QUETIAPINA [Suspect]
     Active Substance: QUETIAPINE
     Indication: PSYCHOTIC DISORDER
     Dosage: ?          QUANTITY:1 TABLET(S);?
     Route: 048
     Dates: start: 20140328, end: 20170616
  3. EUTHIROX [Concomitant]
  4. QUETIAPINA [Concomitant]
     Active Substance: QUETIAPINE
  5. KEPPRA [Concomitant]
     Active Substance: LEVETIRACETAM

REACTIONS (5)
  - Eating disorder [None]
  - Movement disorder [None]
  - Tachycardia [None]
  - Crying [None]
  - Anxiety [None]

NARRATIVE: CASE EVENT DATE: 20170616
